FAERS Safety Report 4688250-0 (Version None)
Quarter: 2005Q2

REPORT INFORMATION
  Report Type: 
  Country: None (occurrence: None)
  Receive Date: 20050609
  Receipt Date: 20050602
  Transmission Date: 20051028
  Serious: Yes (Hospitalization)
  Sender: FDA-Public Use
  Company Number: 2005-01176

PATIENT
  Age: 44 Year
  Sex: Female
  Weight: 49.4 kg

DRUGS (7)
  1. HYDROCODONE BITARTRATE + ACETAMINOPHEN [Suspect]
     Indication: NECK PAIN
     Dosage: 1 TABLET, QID, ORAL
     Route: 048
     Dates: start: 20040501, end: 20050331
  2. HYDROCODONE BITARTRATE + ACETAMINOPHEN [Suspect]
     Indication: NECK PAIN
     Dosage: 1 TABLET, QID, ORAL
     Route: 048
     Dates: start: 20050401, end: 20050430
  3. HYDROCODONE BITARTRATE + ACETAMINOPHEN [Suspect]
     Indication: NECK PAIN
     Dosage: 1 TABLET, QID, ORAL
     Route: 048
     Dates: start: 20050501, end: 20050530
  4. HYDROCODONE BITARTRATE + ACETAMINOPHEN [Suspect]
  5. HYDROCODONE BITARTRATE + ACETAMINOPHEN [Concomitant]
  6. METHOCARBAMOL (WATSON LABORATORIES) (METHOCARBAMOL, METHOCARBAMOL) [Concomitant]
  7. ZYRTEC [Concomitant]

REACTIONS (23)
  - BLOOD GLUCOSE INCREASED [None]
  - BURNING SENSATION [None]
  - CHEST PAIN [None]
  - DIABETES MELLITUS [None]
  - DIARRHOEA [None]
  - DRUG INEFFECTIVE [None]
  - DRUG TOLERANCE [None]
  - ERYTHEMA OF EYELID [None]
  - EYE SWELLING [None]
  - EYELID OEDEMA [None]
  - FACIAL PAIN [None]
  - HYPERTENSION [None]
  - INCREASED UPPER AIRWAY SECRETION [None]
  - LIMB DISCOMFORT [None]
  - MALAISE [None]
  - MEDICATION TAMPERING [None]
  - OCULAR HYPERAEMIA [None]
  - PHARMACEUTICAL PRODUCT COMPLAINT [None]
  - PHARYNGOLARYNGEAL PAIN [None]
  - PRURITUS [None]
  - SHOULDER PAIN [None]
  - TREATMENT NONCOMPLIANCE [None]
  - VISION BLURRED [None]
